FAERS Safety Report 5756936-2 (Version None)
Quarter: 2008Q2

REPORT INFORMATION
  Report Type: 
  Country: None (occurrence: None)
  Receive Date: 20080529
  Receipt Date: 20080521
  Transmission Date: 20081010
  Serious: Yes (Disabling)
  Sender: FDA-Public Use
  Company Number: 08H-163-0314310-00

PATIENT
  Age: 38 Year
  Sex: Female

DRUGS (13)
  1. FENTANYL CITRATE [Suspect]
     Indication: INDUCTION OF ANAESTHESIA
     Dosage: 150 MCG, NOT REPORTED
  2. FENTANYL CITRATE [Suspect]
     Indication: MAINTENANCE OF ANAESTHESIA
     Dosage: 150 MCG, NOT REPORTED
  3. ISOFLURANE [Suspect]
     Indication: MAINTENANCE OF ANAESTHESIA
     Dosage: INHALATION
     Route: 055
  4. PROPOFOL [Suspect]
     Indication: INDUCTION OF ANAESTHESIA
     Dosage: 200 MG, NOT REPORTED
  5. 66% NITROUS OXIDE (NITROUS OXIDE) [Suspect]
     Indication: MAINTENANCE OF ANAESTHESIA
     Dosage: NOT REPORTED, INHALATION
     Route: 055
  6. MIDAZOLAM(MIDAZOLAM HYDROCHLORIDE INJECTION) (MIDAZOLAM HYDROCHLORIDE) [Concomitant]
  7. BICITRA (SHOHL'S) [Concomitant]
  8. RANITIDINE [Concomitant]
  9. SUCCINYLCHOLINE CHLORIDE [Concomitant]
  10. 33% OXYGEN(OXYGEN) [Concomitant]
  11. CEFAZOLINE(CEFAZOLINE SODIUM W/DEXTROSE) [Concomitant]
  12. DOLASETRON(DOLASETRON) [Concomitant]
  13. COMPAZINE [Concomitant]

REACTIONS (3)
  - DEAFNESS NEUROSENSORY [None]
  - DEAFNESS UNILATERAL [None]
  - POST PROCEDURAL COMPLICATION [None]
